FAERS Safety Report 7959798-8 (Version None)
Quarter: 2011Q4

REPORT INFORMATION
  Report Type: 
  Country: None (occurrence: None)
  Receive Date: 20111206
  Receipt Date: 20111125
  Transmission Date: 20120403
  Serious: No
  Sender: FDA-Public Use
  Company Number: CA-JNJFOC-20111201342

PATIENT
  Sex: Female
  Weight: 96 kg

DRUGS (8)
  1. FOLIC ACID [Concomitant]
     Route: 065
  2. VITAMIN B-12 [Concomitant]
     Route: 065
  3. EVENING PRIMROSE OIL [Concomitant]
     Route: 065
  4. METHOTREXATE [Concomitant]
     Route: 030
  5. NAPROXEN [Concomitant]
     Dosage: DOSE: 500 (UNITS UNSPECIFIED)
     Route: 065
  6. CARBOCAL D [Concomitant]
     Route: 065
  7. NEXIUM [Concomitant]
     Route: 065
  8. REMICADE [Suspect]
     Indication: RHEUMATOID ARTHRITIS
     Route: 042
     Dates: start: 20081110

REACTIONS (1)
  - CANDIDIASIS [None]
